FAERS Safety Report 5806184-2 (Version None)
Quarter: 2008Q3

REPORT INFORMATION
  Report Type: 
  Country: None (occurrence: None)
  Receive Date: 20080710
  Receipt Date: 20080701
  Transmission Date: 20090109
  Serious: Yes (Other)
  Sender: FDA-Public Use
  Company Number: MX-BAXTER-2008BH004817

PATIENT
  Age: 5 Year
  Sex: Female
  Weight: 16 kg

DRUGS (3)
  1. SODIUM CHLORIDE 0.9% IN PLASTIC CONTAINER [Suspect]
     Indication: MEDICATION DILUTION
     Route: 042
     Dates: start: 20080422, end: 20080422
  2. CYCLOPHOSPHAMIDE [Suspect]
     Indication: STEM CELL TRANSPLANT
     Route: 042
     Dates: start: 20080421, end: 20080421
  3. CYCLOPHOSPHAMIDE [Suspect]
     Route: 042
     Dates: start: 20080422, end: 20080422

REACTIONS (3)
  - HYPERHIDROSIS [None]
  - HYPOTENSION [None]
  - PAIN [None]
